FAERS Safety Report 25394534 (Version 1)
Quarter: 2025Q2

REPORT INFORMATION
  Report Type: Spontaneous
  Country: US (occurrence: US)
  Receive Date: 20250604
  Receipt Date: 20250604
  Transmission Date: 20250717
  Serious: No
  Sender: ALKEM
  Company Number: US-ALKEM LABORATORIES LIMITED-US-ALKEM-2025-04117

PATIENT
  Sex: Female
  Weight: 64.399 kg

DRUGS (5)
  1. LACOSAMIDE [Suspect]
     Active Substance: LACOSAMIDE
     Indication: Seizure
     Route: 048
  2. Potassium citrate 10meq [Concomitant]
     Indication: Product used for unknown indication
     Route: 065
  3. BACLOFEN [Concomitant]
     Active Substance: BACLOFEN
     Indication: Product used for unknown indication
     Route: 065
  4. Diazepane [Concomitant]
     Indication: Product used for unknown indication
     Route: 065
  5. Synthroid 125mg [Concomitant]
     Route: 065

REACTIONS (3)
  - Drug level decreased [Unknown]
  - Withdrawal syndrome [Unknown]
  - Drug ineffective [Unknown]
